FAERS Safety Report 20044127 (Version 1)
Quarter: 2021Q4

REPORT INFORMATION
  Report Type: Spontaneous
  Country: IT (occurrence: IT)
  Receive Date: 20211108
  Receipt Date: 20211108
  Transmission Date: 20220304
  Serious: Yes (Hospitalization, Other)
  Sender: FDA-Public Use
  Company Number: IT-NOVARTISPH-NVSC2021IT251874

PATIENT
  Age: 32 Year
  Sex: Female

DRUGS (3)
  1. AZATHIOPRINE [Suspect]
     Active Substance: AZATHIOPRINE
     Indication: Urticarial vasculitis
     Dosage: UNK
     Route: 065
  2. MYCOPHENOLATE MOFETIL [Suspect]
     Active Substance: MYCOPHENOLATE MOFETIL
     Indication: Urticarial vasculitis
     Dosage: UNK
     Route: 065
  3. PREDNISONE [Concomitant]
     Active Substance: PREDNISONE
     Indication: Product used for unknown indication
     Dosage: 12.5 MG, QD AS A MAINTENANCE DOSE
     Route: 065

REACTIONS (2)
  - Endocarditis [Unknown]
  - Product use in unapproved indication [Unknown]
